FAERS Safety Report 12169437 (Version 3)
Quarter: 2016Q2

REPORT INFORMATION
  Report Type: Report from Study
  Country: US (occurrence: US)
  Receive Date: 20160310
  Receipt Date: 20160509
  Transmission Date: 20160815
  Serious: Yes (Hospitalization, Other)
  Sender: FDA-Public Use
  Company Number: US-GILEAD-2016-0202862

PATIENT
  Age: 79 Year
  Sex: Female

DRUGS (2)
  1. AMBRISENTAN [Suspect]
     Active Substance: AMBRISENTAN
     Indication: PULMONARY HYPERTENSION
     Dosage: 10 MG, QD
     Route: 065
     Dates: start: 20120801
  2. AMBRISENTAN [Suspect]
     Active Substance: AMBRISENTAN
     Indication: MALAISE
     Dosage: 5 MG, QD
     Route: 065
     Dates: start: 20111010

REACTIONS (6)
  - Haemorrhage [Recovered/Resolved]
  - Off label use [Unknown]
  - Pericardial effusion [Unknown]
  - Sepsis [Unknown]
  - Urinary tract infection [Recovered/Resolved]
  - Hypotension [Unknown]

NARRATIVE: CASE EVENT DATE: 20160209
